FAERS Safety Report 12544908 (Version 7)
Quarter: 2017Q1

REPORT INFORMATION
  Report Type: Spontaneous
  Country: CA (occurrence: CA)
  Receive Date: 20160711
  Receipt Date: 20170118
  Transmission Date: 20170428
  Serious: Yes (Other)
  Sender: FDA-Public Use
  Company Number: CA-GLAXOSMITHKLINE-CA2016GSK098473

PATIENT
  Age: 58 Year
  Sex: Female
  Weight: 78 kg

DRUGS (14)
  1. BENLYSTA [Suspect]
     Active Substance: BELIMUMAB
     Dosage: 810 MG, UNK
     Route: 042
     Dates: start: 20161230
  2. JAMP VITAMIN D [Concomitant]
     Dosage: 1 TABLET WEEKLY ALWAYS ON SAME DAY
     Dates: start: 20160202
  3. ACTONEL [Concomitant]
     Active Substance: RISEDRONATE SODIUM
     Dosage: 1 DF, MONTHLY, SAME CALENDAR DAY EACH MONTH, 30 MINS BEFORE BREAKFAST
     Dates: start: 20160202
  4. CORTISONE [Suspect]
     Active Substance: CORTISONE\HYDROCORTISONE
     Dosage: 50 MG, QD
  5. ACTONEL [Concomitant]
     Active Substance: RISEDRONATE SODIUM
     Dosage: 1 DF, MONTHLY IN MORNING, 30 MINUTES BEFORE BREAKFAST
     Dates: start: 20150902
  6. NASONEX [Concomitant]
     Active Substance: MOMETASONE FUROATE
     Dosage: 2 INH EACH NOSTRIL MORNING AND NIGHT
     Dates: start: 20151111
  7. BENLYSTA [Suspect]
     Active Substance: BELIMUMAB
     Dosage: 810 MG, UNK
  8. MIRAPEX [Concomitant]
     Active Substance: PRAMIPEXOLE DIHYDROCHLORIDE
     Dosage: 1 TABLET ONCE DAILY 2 TO 3 HOURS BEFORE SLEEP
     Dates: start: 20151023
  9. TEVA PREDNISONE [Concomitant]
     Dosage: 1 TABLET AT NIGHT BEFORE INFUSION, 1 TABLET MORNING OF BENLYSTA
     Dates: start: 20160202
  10. FENTANYL. [Concomitant]
     Active Substance: FENTANYL
  11. BENLYSTA [Suspect]
     Active Substance: BELIMUMAB
     Indication: SYSTEMIC LUPUS ERYTHEMATOSUS
     Dosage: 810 MG, UNK
     Route: 042
     Dates: start: 20140327
  12. MIRAPEX [Concomitant]
     Active Substance: PRAMIPEXOLE DIHYDROCHLORIDE
     Dosage: 1 TABLET ONCE DAILY 2 TO 3 HOURS BEFORE SLEEP
     Dates: start: 20151023
  13. CORTISONE [Suspect]
     Active Substance: CORTISONE\HYDROCORTISONE
     Indication: PRODUCT USED FOR UNKNOWN INDICATION
     Dosage: 10 MG, QD
  14. APO PREDNISONE [Concomitant]
     Dosage: 3 DF, QD, BEFORE BREAKFAST
     Dates: start: 20160202

REACTIONS (13)
  - Stress [Unknown]
  - Depression [Unknown]
  - Pain in extremity [Unknown]
  - Palpitations [Recovered/Resolved]
  - Pain [Unknown]
  - Insomnia [Unknown]
  - Trigger finger [Unknown]
  - Systemic lupus erythematosus [Unknown]
  - Limb injury [Unknown]
  - Hypoglycaemia [Unknown]
  - Dyspnoea [Recovered/Resolved]
  - Arthritis [Unknown]
  - Arthropathy [Unknown]

NARRATIVE: CASE EVENT DATE: 20161201
